FAERS Safety Report 6067210-1 (Version None)
Quarter: 2009Q1

REPORT INFORMATION
  Report Type: 
  Country: None (occurrence: None)
  Receive Date: 20090204
  Receipt Date: 20090204
  Transmission Date: 20090719
  Serious: No
  Sender: FDA-Public Use
  Company Number: None

PATIENT
  Age: 2 Year
  Sex: Female
  Weight: 20.8655 kg

DRUGS (1)
  1. CHILDREN'S TYLENOL PLUS -COLD + COUGH DYE FREE - 120ML - NDC 50580-254 [Suspect]
     Indication: PYREXIA
     Dosage: 36LBS-47LBS 1 TEASPOON 4-6 HOURS PO
     Route: 048
     Dates: start: 20090128, end: 20090130

REACTIONS (9)
  - ABNORMAL BEHAVIOUR [None]
  - CONFUSIONAL STATE [None]
  - CRYING [None]
  - HALLUCINATION [None]
  - PRURITUS GENERALISED [None]
  - RASH [None]
  - SPEECH DISORDER [None]
  - UNRESPONSIVE TO STIMULI [None]
  - VOMITING [None]
